FAERS Safety Report 6165572-8 (Version None)
Quarter: 2009Q2

REPORT INFORMATION
  Report Type: 
  Country: None (occurrence: None)
  Receive Date: 20090423
  Receipt Date: 20090413
  Transmission Date: 20091009
  Serious: Yes (Death, Hospitalization)
  Sender: FDA-Public Use
  Company Number: US-JNJFOC-20090404584

PATIENT
  Age: 30 Year
  Sex: Female

DRUGS (2)
  1. ACETAMINOPHEN [Suspect]
     Route: 048
  2. ACETAMINOPHEN [Suspect]
     Indication: PAIN
     Route: 048

REACTIONS (4)
  - COMA [None]
  - HEPATIC FUNCTION ABNORMAL [None]
  - INTENTIONAL OVERDOSE [None]
  - JAUNDICE [None]
